FAERS Safety Report 8352760-5 (Version None)
Quarter: 2012Q2

REPORT INFORMATION
  Report Type: 
  Country: None (occurrence: None)
  Receive Date: 20120511
  Receipt Date: 20120503
  Transmission Date: 20120825
  Serious: Yes (Other)
  Sender: FDA-Public Use
  Company Number: US-AMGEN-USASP2012028027

PATIENT
  Age: 49 Year
  Sex: Female

DRUGS (1)
  1. ENBREL [Suspect]
     Indication: RHEUMATOID ARTHRITIS
     Dosage: 25 MG, 2 TIMES/WK
     Dates: start: 20060101

REACTIONS (15)
  - HEADACHE [None]
  - FATIGUE [None]
  - DYSARTHRIA [None]
  - PNEUMONIA [None]
  - MALAISE [None]
  - HYPOAESTHESIA ORAL [None]
  - PARALYSIS [None]
  - VISION BLURRED [None]
  - INJECTION SITE PAIN [None]
  - SINUS CONGESTION [None]
  - ARTHRALGIA [None]
  - EYE DISCHARGE [None]
  - INFECTION [None]
  - RESPIRATORY TRACT CONGESTION [None]
  - PARAESTHESIA ORAL [None]
